FAERS Safety Report 5751622-7 (Version None)
Quarter: 2008Q2

REPORT INFORMATION
  Report Type: 
  Country: None (occurrence: None)
  Receive Date: 20080528
  Receipt Date: 20080520
  Transmission Date: 20081010
  Serious: Yes (Other)
  Sender: FDA-Public Use
  Company Number: PHHY2008GB03548

PATIENT
  Sex: Male

DRUGS (1)
  1. EXELON [Suspect]
     Indication: DEMENTIA
     Dosage: 1.5 MG, UNK
     Route: 048
     Dates: start: 20080220, end: 20080318

REACTIONS (3)
  - CONFUSIONAL STATE [None]
  - MOBILITY DECREASED [None]
  - SOMNOLENCE [None]
